FAERS Safety Report 7463070-2 (Version None)
Quarter: 2011Q2

REPORT INFORMATION
  Report Type: 
  Country: None (occurrence: None)
  Receive Date: 20110506
  Receipt Date: 20100930
  Transmission Date: 20111010
  Serious: Yes (Hospitalization)
  Sender: FDA-Public Use
  Company Number: US-BAYER-201036663NA

PATIENT
  Age: 31 Year
  Sex: Female
  Weight: 63 kg

DRUGS (6)
  1. PROZAC [Concomitant]
     Indication: PREMENSTRUAL SYNDROME
     Dosage: UNK UNK, PRN
     Route: 048
  2. ACETAMINOPHEN W/ CODEINE [Concomitant]
  3. STOOL SOFTENER [Concomitant]
  4. PRENATAL VITAMINS [Concomitant]
  5. YASMIN [Suspect]
     Dosage: UNK
     Route: 048
     Dates: start: 20020901, end: 20090103
  6. ADVIL LIQUI-GELS [Concomitant]
     Dosage: UNK UNK, PRN

REACTIONS (4)
  - DYSPNOEA [None]
  - PULMONARY EMBOLISM [None]
  - PARAESTHESIA [None]
  - CHEST PAIN [None]
